FAERS Safety Report 20031592 (Version 1)
Quarter: 2021Q4

REPORT INFORMATION
  Report Type: Report from Study
  Country: CO (occurrence: CO)
  Receive Date: 20211103
  Receipt Date: 20211103
  Transmission Date: 20220303
  Serious: Yes (Other)
  Sender: FDA-Public Use
  Company Number: CO-ABBVIE-21K-036-4142367-00

PATIENT
  Sex: Male
  Weight: 67 kg

DRUGS (3)
  1. HUMIRA [Suspect]
     Active Substance: ADALIMUMAB
     Indication: Colitis ulcerative
     Route: 058
     Dates: start: 20140715
  2. HUMIRA [Suspect]
     Active Substance: ADALIMUMAB
     Indication: Colitis ulcerative
     Dosage: AC
     Route: 058
  3. OXYGEN [Concomitant]
     Active Substance: OXYGEN
     Indication: Apnoea
     Dosage: SEMIPERMANENT
     Route: 045

REACTIONS (4)
  - Infarction [Not Recovered/Not Resolved]
  - Therapeutic product effect incomplete [Unknown]
  - Skin irritation [Not Recovered/Not Resolved]
  - Musculoskeletal pain [Not Recovered/Not Resolved]

NARRATIVE: CASE EVENT DATE: 20170101
